FAERS Safety Report 7036829-3 (Version None)
Quarter: 2010Q4

REPORT INFORMATION
  Report Type: 
  Country: None (occurrence: None)
  Receive Date: 20101011
  Receipt Date: 20101004
  Transmission Date: 20110411
  Serious: Yes (Hospitalization, Other)
  Sender: FDA-Public Use
  Company Number: US-ELI_LILLY_AND_COMPANY-US201005000642

PATIENT
  Sex: Male
  Weight: 102.4 kg

DRUGS (5)
  1. BYETTA [Suspect]
     Dosage: UNK, UNKNOWN
     Dates: start: 20050101, end: 20090401
  2. DRUG USED IN DIABETES [Concomitant]
     Indication: DIABETES MELLITUS
     Route: 048
  3. DIURETICS [Concomitant]
  4. ANTIBIOTICS [Concomitant]
  5. TYLENOL (CAPLET) [Concomitant]

REACTIONS (2)
  - PANCREATITIS [None]
  - RENAL FAILURE [None]
